FAERS Safety Report 10525478 (Version 1)
Quarter: 2014Q4

REPORT INFORMATION
  Report Type: Spontaneous
  Country: JP (occurrence: JP)
  Receive Date: 20141017
  Receipt Date: 20141017
  Transmission Date: 20150528
  Serious: Yes (Other)
  Sender: FDA-Public Use
  Company Number: JP-B.I. PHARMACEUTICALS,INC./RIDGEFIELD-2014-RO-01572RO

PATIENT
  Age: 47 Year
  Sex: Female

DRUGS (6)
  1. QUETIAPINE FUMARATE. [Suspect]
     Active Substance: QUETIAPINE FUMARATE
     Indication: HALLUCINATION, AUDITORY
     Dosage: 25 MG
     Route: 065
  2. ROPINIROLE. [Suspect]
     Active Substance: ROPINIROLE
     Indication: PARKINSON^S DISEASE
     Route: 065
  3. TRIHEXYPHENIDYL [Suspect]
     Active Substance: TRIHEXYPHENIDYL
     Indication: PARKINSONISM
     Dosage: 3 MG
     Route: 065
  4. YOKUKANSAN [Suspect]
     Active Substance: HERBALS
     Indication: PARKINSONISM
     Dosage: 7.5 G
     Route: 065
  5. PRAMIPEXOLE [Suspect]
     Active Substance: PRAMIPEXOLE
     Indication: PARKINSONISM
     Dosage: 0.75 MG
     Route: 065
  6. LEVODOPA [Suspect]
     Active Substance: LEVODOPA
     Indication: PARKINSONISM
     Dosage: 250 MG
     Route: 065

REACTIONS (6)
  - Hallucination, auditory [Recovered/Resolved]
  - Anxiety [Unknown]
  - Depressed mood [Recovered/Resolved]
  - Parkinsonism [Unknown]
  - Extrapyramidal disorder [Unknown]
  - Insomnia [Unknown]
